FAERS Safety Report 10155050 (Version 2)
Quarter: 2014Q2

REPORT INFORMATION
  Report Type: Spontaneous
  Country: FR (occurrence: FR)
  Receive Date: 20140506
  Receipt Date: 20140529
  Transmission Date: 20141212
  Serious: Yes (Hospitalization, Other)
  Sender: FDA-Public Use
  Company Number: FR-PFIZER INC-2014120329

PATIENT
  Age: 81 Year
  Sex: Male

DRUGS (8)
  1. ALDACTONE [Suspect]
     Indication: ASCITES
     Dosage: 75 MG, DAILY
     Route: 048
     Dates: start: 20140213, end: 20140410
  2. COVERAM [Interacting]
     Dosage: UNK
     Route: 048
     Dates: end: 20140410
  3. FUROSEMIDE [Concomitant]
     Dosage: 80 MG, DAILY
     Route: 048
     Dates: start: 20140213, end: 20140410
  4. TARDYFERON [Concomitant]
     Dosage: 80 MG, 2X/DAY
     Route: 048
     Dates: end: 20140410
  5. GLUCOPHAGE [Concomitant]
     Dosage: UNK
     Route: 048
     Dates: end: 20140408
  6. SIMVASTATIN [Concomitant]
     Dosage: UNK
     Route: 048
     Dates: end: 20140410
  7. NEBIVOLOL [Concomitant]
     Dosage: UNK
     Route: 048
     Dates: end: 20140410
  8. PREVISCAN [Concomitant]
     Dosage: UNK
     Route: 048
     Dates: end: 20140410

REACTIONS (3)
  - Drug interaction [Unknown]
  - Hyperkalaemia [Recovered/Resolved]
  - Creatinine renal clearance decreased [Unknown]
